FAERS Safety Report 13683870 (Version 2)
Quarter: 2017Q3

REPORT INFORMATION
  Report Type: Spontaneous
  Country: US (occurrence: US)
  Receive Date: 20170623
  Receipt Date: 20170905
  Transmission Date: 20171127
  Serious: No
  Sender: FDA-Public Use
  Company Number: US-PFIZER INC-2017267590

PATIENT
  Sex: Female

DRUGS (2)
  1. LYRICA [Suspect]
     Active Substance: PREGABALIN
     Indication: PROCTALGIA
     Dosage: UNK
  2. LYRICA [Suspect]
     Active Substance: PREGABALIN
     Indication: NERVE INJURY

REACTIONS (7)
  - Paraesthesia oral [Unknown]
  - Heart rate decreased [Unknown]
  - Drug hypersensitivity [Unknown]
  - Urticaria [Unknown]
  - Palpitations [Unknown]
  - Drug intolerance [Unknown]
  - Tremor [Unknown]
